FAERS Safety Report 6384160-1 (Version None)
Quarter: 2009Q4

REPORT INFORMATION
  Report Type: 
  Country: None (occurrence: None)
  Receive Date: 20091001
  Receipt Date: 20090928
  Transmission Date: 20100525
  Serious: Yes (Other)
  Sender: FDA-Public Use
  Company Number: JP-BAYER-200910483BYL

PATIENT
  Age: 18 Year
  Sex: Male
  Weight: 58 kg

DRUGS (24)
  1. FLUDARA [Suspect]
     Indication: EPSTEIN-BARR VIRUS ASSOCIATED LYMPHOPROLIFERATIVE DISORDER
     Dosage: TOTAL DAILY DOSE: 50 MG  UNIT DOSE: 50 MG
     Route: 042
     Dates: start: 20080814, end: 20080818
  2. MEROPEN [Suspect]
     Indication: FEBRILE NEUTROPENIA
     Dosage: AS USED: 2.0 G
     Route: 042
     Dates: start: 20080826, end: 20080908
  3. TARGOCID [Suspect]
     Indication: FEBRILE NEUTROPENIA
     Dosage: AS USED: 800-400 MG
     Route: 042
     Dates: start: 20080826, end: 20080908
  4. FUNGUARD [Suspect]
     Indication: FEBRILE NEUTROPENIA
     Dosage: AS USED: 150 MG
     Route: 042
     Dates: start: 20080830, end: 20080905
  5. METHOTREXATE [Suspect]
     Indication: DRUG USE FOR UNKNOWN INDICATION
     Route: 065
  6. MELPHALAN [Concomitant]
     Indication: EPSTEIN-BARR VIRUS ASSOCIATED LYMPHOPROLIFERATIVE DISORDER
     Dosage: AS USED: 120 MG
     Route: 042
     Dates: start: 20080819, end: 20080820
  7. LYMPHOGLOBULINE [Concomitant]
     Indication: EPSTEIN-BARR VIRUS ASSOCIATED LYMPHOPROLIFERATIVE DISORDER
     Dosage: AS USED: 600 MBQ
     Route: 042
     Dates: start: 20080801, end: 20080820
  8. PREDONINE [Concomitant]
     Indication: EPSTEIN-BARR VIRUS ASSOCIATED LYMPHOPROLIFERATIVE DISORDER
     Dosage: AS USED: 10 MG
     Route: 048
     Dates: start: 20080814, end: 20080905
  9. BAKTAR [Concomitant]
     Indication: INFECTION PROPHYLAXIS
     Dosage: TOTAL DAILY DOSE: 1 DF  UNIT DOSE: 1 DF
     Route: 048
     Dates: start: 20080814, end: 20080820
  10. PARIET [Concomitant]
     Dosage: AS USED: 10 MG
     Route: 048
     Dates: start: 20080814
  11. ITRIZOLE [Concomitant]
     Indication: INFECTION PROPHYLAXIS
     Dosage: AS USED: 200 MG
     Route: 048
     Dates: start: 20080814, end: 20080903
  12. ITRIZOLE [Concomitant]
     Dosage: AS USED: 20 ML
     Route: 048
     Dates: start: 20080820
  13. SWORD [Concomitant]
     Indication: INFECTION PROPHYLAXIS
     Dosage: AS USED: 400 MG
     Route: 048
     Dates: start: 20080814
  14. ZOVIRAX [Concomitant]
     Indication: INFECTION PROPHYLAXIS
     Dosage: AS USED: 1000 MG
     Route: 048
     Dates: start: 20080815, end: 20080926
  15. CODEINE PHOSPHATE [Concomitant]
     Dosage: AS USED: 15 MG
     Route: 048
     Dates: start: 20080919, end: 20081001
  16. PROGRAF [Concomitant]
     Indication: PROPHYLAXIS AGAINST GRAFT VERSUS HOST DISEASE
     Route: 042
     Dates: start: 20080821, end: 20080905
  17. PROGRAF [Concomitant]
     Route: 048
     Dates: start: 20081024
  18. KENKETSU GLOVENIN-I-NICHIYAKU [Concomitant]
     Indication: INFECTION PROPHYLAXIS
     Dosage: AS USED: 7.5 G
     Route: 042
     Dates: start: 20080821, end: 20081019
  19. IMMUNE GLOBULIN INTRAVENOUS (HUMAN) [Concomitant]
     Indication: INFECTION PROPHYLAXIS
     Dosage: AS USED: 7.5 G
     Route: 042
     Dates: start: 20081101, end: 20081102
  20. GRAN [Concomitant]
     Indication: INFECTION PROPHYLAXIS
     Dosage: AS USED: 450 ?G
     Route: 042
     Dates: start: 20080825, end: 20080910
  21. ALBUMIN (HUMAN) [Concomitant]
     Indication: SELECTIVE IGG SUBCLASS DEFICIENCY
     Dosage: TOTAL DAILY DOSE: 1 DF  UNIT DOSE: 1 DF
     Route: 042
     Dates: start: 20081004, end: 20081006
  22. URSO 250 [Concomitant]
     Dosage: AS USED: 300 MG
     Route: 048
     Dates: start: 20080817, end: 20080915
  23. CONCENTRATED RED CELLS [Concomitant]
     Indication: PACKED RED BLOOD CELL TRANSFUSION
     Route: 042
     Dates: start: 20080830, end: 20080903
  24. PLATELETS [Concomitant]
     Indication: PLATELET TRANSFUSION
     Route: 042
     Dates: start: 20080827, end: 20080903

REACTIONS (9)
  - ACUTE GRAFT VERSUS HOST DISEASE [None]
  - CYSTITIS HAEMORRHAGIC [None]
  - CYTOMEGALOVIRUS INFECTION [None]
  - DEVICE RELATED INFECTION [None]
  - ENGRAFTMENT SYNDROME [None]
  - FEBRILE NEUTROPENIA [None]
  - HISTIOCYTOSIS HAEMATOPHAGIC [None]
  - LIVER DISORDER [None]
  - PSEUDOMEMBRANOUS COLITIS [None]
